FAERS Safety Report 7955044 (Version 3)
Quarter: 2012Q4

REPORT INFORMATION
  Report Type: 
  Country: FR (occurrence: FR)
  Receive Date: 20110523
  Receipt Date: 20120911
  Transmission Date: 20130627
  Serious: Yes (Hospitalization)
  Sender: FDA-Public Use
  Company Number: FR-AMGEN-FRASP2011025635

PATIENT
  Age: 57 Year
  Sex: Female
  Weight: 67.6 kg

DRUGS (3)
  1. ENBREL [Suspect]
     Indication: ANKYLOSING SPONDYLITIS
     Dosage: 50 mg, weekly
     Route: 058
     Dates: start: 201006, end: 20110419
  2. CELEBREX [Concomitant]
     Dosage: UNK
  3. CORTICOSTEROID NOS [Concomitant]
     Dosage: UNK

REACTIONS (1)
  - Pulmonary embolism [Recovered/Resolved]
